FAERS Safety Report 8459562-X (Version None)
Quarter: 2012Q2

REPORT INFORMATION
  Report Type: 
  Country: None (occurrence: None)
  Receive Date: 20120622
  Receipt Date: 20120612
  Transmission Date: 20120825
  Serious: Yes (Hospitalization)
  Sender: FDA-Public Use
  Company Number: US-JNJFOC-20120111115

PATIENT
  Sex: Female
  Weight: 51.6 kg

DRUGS (5)
  1. HUMIRA [Concomitant]
     Indication: CROHN'S DISEASE
     Dates: start: 20101128
  2. NEXIUM [Concomitant]
  3. REMICADE [Suspect]
     Indication: CROHN'S DISEASE
     Route: 042
     Dates: start: 20100831
  4. MESALAMINE [Concomitant]
     Indication: CROHN'S DISEASE
     Route: 048
  5. XOPENEX [Concomitant]

REACTIONS (1)
  - CROHN'S DISEASE [None]
